FAERS Safety Report 10673464 (Version 1)
Quarter: 2014Q4

REPORT INFORMATION
  Report Type: Spontaneous
  Country: FR (occurrence: FR)
  Receive Date: 20141224
  Receipt Date: 20141224
  Transmission Date: 20150529
  Serious: Yes (Hospitalization)
  Sender: FDA-Public Use
  Company Number: FR-009507513-1412FRA010523

PATIENT
  Age: 66 Year
  Sex: Female

DRUGS (12)
  1. MICARDIS [Concomitant]
     Active Substance: TELMISARTAN
  2. EZETROL [Suspect]
     Active Substance: EZETIMIBE
     Indication: DYSLIPIDAEMIA
     Dosage: UNK
     Route: 048
     Dates: start: 20141208, end: 20141208
  3. MOPRAL (OMEPRAZOLE) [Suspect]
     Active Substance: OMEPRAZOLE SODIUM
     Dosage: 20MG DAILY
     Dates: start: 20141208
  4. VERAPAMIL HYDROCHLORIDE. [Concomitant]
     Active Substance: VERAPAMIL HYDROCHLORIDE
  5. ZELITREX [Suspect]
     Active Substance: VALACYCLOVIR HYDROCHLORIDE
     Indication: ORAL HERPES
     Dosage: 500MG DAILY
     Route: 048
  6. METFORMIN [Concomitant]
     Active Substance: METFORMIN HYDROCHLORIDE
  7. ORENCIA [Suspect]
     Active Substance: ABATACEPT
     Indication: RHEUMATOID ARTHRITIS
     Dosage: UNK
     Dates: start: 200801, end: 20141103
  8. TAHOR [Suspect]
     Active Substance: ATORVASTATIN CALCIUM
     Indication: DYSLIPIDAEMIA
     Dosage: UNK
     Route: 048
     Dates: end: 20141208
  9. ZOMIG [Concomitant]
     Active Substance: ZOLMITRIPTAN
  10. DEROXAT [Concomitant]
     Active Substance: PAROXETINE HYDROCHLORIDE
  11. CELEBREX [Suspect]
     Active Substance: CELECOXIB
     Indication: BACK PAIN
     Dosage: UNK
     Route: 048
     Dates: end: 20141208
  12. THERALENE [Suspect]
     Active Substance: TRIMEPRAZINE
     Dosage: UNK
     Route: 048
     Dates: end: 20141208

REACTIONS (1)
  - Agranulocytosis [Recovering/Resolving]

NARRATIVE: CASE EVENT DATE: 20141208
